FAERS Safety Report 8436610-4 (Version None)
Quarter: 2012Q2

REPORT INFORMATION
  Report Type: 
  Country: None (occurrence: None)
  Receive Date: 20120608
  Receipt Date: 20120608
  Transmission Date: 20120825
  Serious: Yes (Hospitalization)
  Sender: FDA-Public Use
  Company Number: None

PATIENT
  Age: 23 Year
  Sex: Male
  Weight: 75 kg

DRUGS (2)
  1. KOGENATE [Suspect]
     Dosage: 4-5 UNITS/KG/HR CONTINUOUS INFUSION IV DRIP
     Route: 041
     Dates: start: 20120406, end: 20120410
  2. KOGENATE [Suspect]
     Indication: FACTOR VIII DEFICIENCY
     Dosage: 4 UNITS/KG/HR CONTINUOUS INFUSION IV DRIP
     Route: 041
     Dates: start: 20120311, end: 20120314

REACTIONS (4)
  - PRODUCT QUALITY ISSUE [None]
  - HAEMARTHROSIS [None]
  - THERAPEUTIC RESPONSE DECREASED [None]
  - FACTOR VIII INHIBITION [None]
